FAERS Safety Report 6626628-6 (Version None)
Quarter: 2010Q1

REPORT INFORMATION
  Report Type: 
  Country: None (occurrence: None)
  Receive Date: 20100309
  Receipt Date: 20100309
  Transmission Date: 20100710
  Serious: Yes (Hospitalization)
  Sender: FDA-Public Use
  Company Number: None

PATIENT
  Age: 28 Year
  Sex: Male
  Weight: 78.0187 kg

DRUGS (2)
  1. YTTRIUM 90 [Suspect]
     Indication: HODGKIN'S DISEASE
     Dosage: YTTRIUM 90 X1 IV DRIP X1 TREATMENT/CYCLE
     Route: 041
     Dates: start: 20100107, end: 20100107
  2. ZENAPAX [Suspect]
     Dosage: 1 IV DRIP
     Route: 041

REACTIONS (11)
  - BRONCHOALVEOLAR LAVAGE ABNORMAL [None]
  - CYTOMEGALOVIRUS INFECTION [None]
  - GRAFT VERSUS HOST DISEASE [None]
  - HODGKIN'S DISEASE [None]
  - INFLAMMATION [None]
  - LUNG DISORDER [None]
  - LUNG INFECTION [None]
  - LUNG INFILTRATION [None]
  - MALIGNANT NEOPLASM PROGRESSION [None]
  - PLEURAL EFFUSION [None]
  - PNEUMONITIS [None]
